FAERS Safety Report 9789416 (Version 1)
Quarter: 2013Q4

REPORT INFORMATION
  Report Type: Report from Study
  Country: US (occurrence: US)
  Receive Date: 20131231
  Receipt Date: 20131231
  Transmission Date: 20140711
  Serious: Yes (Hospitalization)
  Sender: FDA-Public Use
  Company Number: US-ABBVIE-13P-163-1183459-00

PATIENT
  Age: 51 Year
  Sex: Female

DRUGS (12)
  1. HUMIRA [Suspect]
     Indication: CROHN^S DISEASE
     Dates: start: 20130316
  2. TRAZODONE [Concomitant]
     Indication: INSOMNIA
     Dosage: AT BEDTIME
  3. PROTONIX [Concomitant]
     Indication: DYSPEPSIA
  4. PROZAC [Concomitant]
     Indication: DEPRESSION
  5. PERCOCET [Concomitant]
     Indication: PROPHYLAXIS
     Dosage: 10/325 AS NEEDED
  6. PERCOCET [Concomitant]
     Indication: CROHN^S DISEASE
  7. B 12 SHOT [Concomitant]
     Indication: CROHN^S DISEASE
  8. DICYCLOMINE [Concomitant]
     Indication: ABDOMINAL PAIN
     Dosage: AS NEEDED
  9. DICYCLOMINE [Concomitant]
     Indication: CROHN^S DISEASE
  10. POTASSIUM CHLORIDE [Concomitant]
     Indication: CROHN^S DISEASE
  11. METOPROLOL XL [Concomitant]
     Indication: HYPERTENSION
  12. PENTASA [Concomitant]
     Indication: CROHN^S DISEASE

REACTIONS (6)
  - Intestinal obstruction [Recovering/Resolving]
  - Abdominal pain [Recovering/Resolving]
  - Urinary tract infection [Unknown]
  - Clostridium difficile infection [Unknown]
  - Fatigue [Unknown]
  - Asthenia [Unknown]
